FAERS Safety Report 6425234-6 (Version None)
Quarter: 2009Q4

REPORT INFORMATION
  Report Type: 
  Country: None (occurrence: None)
  Receive Date: 20091103
  Receipt Date: 20091030
  Transmission Date: 20100525
  Serious: Yes (Life-Threatening, Hospitalization, Other)
  Sender: FDA-Public Use
  Company Number: US-MERCK-0907USA05395

PATIENT
  Age: 77 Year
  Sex: Male

DRUGS (7)
  1. ZETIA [Suspect]
     Indication: HYPERLIPIDAEMIA
     Route: 048
     Dates: start: 20090304, end: 20090712
  2. TELMISARTAN [Concomitant]
     Route: 065
  3. TERAZOSIN HYDROCHLORIDE [Concomitant]
     Route: 065
  4. ASPIRIN [Concomitant]
     Route: 065
  5. GLIPIZIDE [Concomitant]
     Route: 065
  6. EPINEPHRINE [Concomitant]
     Route: 065
  7. METFORMIN [Concomitant]
     Route: 065

REACTIONS (8)
  - ADVERSE EVENT [None]
  - ANAPHYLACTIC SHOCK [None]
  - BLOOD PRESSURE ABNORMAL [None]
  - DIZZINESS [None]
  - DYSPNOEA [None]
  - PRURITUS [None]
  - RASH [None]
  - URTICARIA [None]
